FAERS Safety Report 5546850-X (Version None)
Quarter: 2007Q4

REPORT INFORMATION
  Report Type: 
  Country: None (occurrence: None)
  Receive Date: 20071211
  Receipt Date: 20071129
  Transmission Date: 20080405
  Serious: Yes (Hospitalization, Other)
  Sender: FDA-Public Use
  Company Number: US-PFIZER INC-2007101915

PATIENT
  Sex: Female
  Weight: 53.636 kg

DRUGS (7)
  1. CHANTIX [Suspect]
     Indication: SMOKING CESSATION THERAPY
  2. INSULIN [Concomitant]
     Route: 048
  3. NORTRIPTYLINE HCL [Concomitant]
     Route: 048
  4. PROTONIX [Concomitant]
     Route: 048
  5. DIOVAN [Concomitant]
     Route: 048
  6. LISINOPRIL [Concomitant]
     Route: 048
  7. VICODIN [Concomitant]
     Route: 048

REACTIONS (6)
  - BRONCHITIS [None]
  - CONSTIPATION [None]
  - DYSPNOEA [None]
  - EMPHYSEMA [None]
  - PNEUMONIA [None]
  - URINARY TRACT DISORDER [None]
